FAERS Safety Report 16443471 (Version 3)
Quarter: 2019Q3

REPORT INFORMATION
  Report Type: Spontaneous
  Country: IT (occurrence: IT)
  Receive Date: 20190618
  Receipt Date: 20190708
  Transmission Date: 20191004
  Serious: Yes (Other)
  Sender: FDA-Public Use
  Company Number: IT-CELLTRION INC.-2019IT021982

PATIENT

DRUGS (3)
  1. METHYLPREDNISOLONE. [Concomitant]
     Active Substance: METHYLPREDNISOLONE
     Indication: MICROSCOPIC POLYANGIITIS
     Dosage: 15MG/KG/DIE FOR 3DAYS
     Route: 065
  2. PREDNISONE. [Concomitant]
     Active Substance: PREDNISONE
     Indication: MICROSCOPIC POLYANGIITIS
     Dosage: 1MG/KG/DIE FOR 1 MONTH
     Route: 065
  3. RITUXIMAB (UNKNOWN) [Suspect]
     Active Substance: RITUXIMAB
     Indication: MICROSCOPIC POLYANGIITIS
     Dosage: 375MG/M2 WEEKLY FOR 4 WEEKS
     Route: 041

REACTIONS (3)
  - Intentional product use issue [Unknown]
  - Off label use [Unknown]
  - Infection [Unknown]
